FAERS Safety Report 9045809 (Version 1)
Quarter: 2013Q1

REPORT INFORMATION
  Report Type: Report from Study
  Country: US (occurrence: US)
  Receive Date: 20130201
  Receipt Date: 20130201
  Transmission Date: 20140127
  Serious: Yes (Hospitalization, Other)
  Sender: FDA-Public Use
  Company Number: US-ABBOTT-12P-163-1004683-00

PATIENT
  Sex: Female

DRUGS (3)
  1. HUMIRA [Suspect]
     Indication: COLITIS ULCERATIVE
     Dosage: 160 MG DAY ONE
     Dates: start: 20120921, end: 20120921
  2. HUMIRA [Suspect]
     Dosage: 80 MG ON DAY 15
     Dates: start: 2012
  3. HUMIRA [Suspect]
     Dates: end: 20121102

REACTIONS (4)
  - Drug ineffective [Unknown]
  - Frequent bowel movements [Unknown]
  - Somnolence [Unknown]
  - Surgery [Unknown]
